FAERS Safety Report 18860784 (Version 1)
Quarter: 2021Q1

REPORT INFORMATION
  Report Type: Spontaneous
  Country: SA (occurrence: SA)
  Receive Date: 20210208
  Receipt Date: 20210208
  Transmission Date: 20210420
  Serious: Yes (Other)
  Sender: FDA-Public Use
  Company Number: SA-AMGEN-SAUSP2021017649

PATIENT
  Age: 52 Year
  Sex: Male
  Weight: 80 kg

DRUGS (1)
  1. REPATHA [Suspect]
     Active Substance: EVOLOCUMAB
     Indication: LOW DENSITY LIPOPROTEIN ABNORMAL
     Dosage: 140 MILLIGRAM, Q2WK
     Route: 058
     Dates: start: 20200801

REACTIONS (1)
  - Angina pectoris [Not Recovered/Not Resolved]

NARRATIVE: CASE EVENT DATE: 20200816
